FAERS Safety Report 5136523-X (Version None)
Quarter: 2006Q4

REPORT INFORMATION
  Report Type: 
  Country: None (occurrence: None)
  Receive Date: 20061027
  Receipt Date: 20061024
  Transmission Date: 20070319
  Serious: Yes (Hospitalization)
  Sender: FDA-Public Use
  Company Number: US-ROXANE LABORATORIES, INC-2006-BP-12506BP

PATIENT
  Sex: Female
  Weight: 85 kg

DRUGS (6)
  1. WARFARIN SODIUM [Suspect]
     Indication: CEREBROVASCULAR ACCIDENT PROPHYLAXIS
     Route: 048
     Dates: start: 20061014, end: 20061022
  2. WARFARIN SODIUM [Suspect]
     Indication: THROMBOSIS PROPHYLAXIS
  3. FUROSEMIDE [Suspect]
     Indication: HYPERTROPHIC CARDIOMYOPATHY
     Route: 048
     Dates: start: 20061015, end: 20061023
  4. ALDACTONE [Suspect]
     Indication: HYPERTROPHIC CARDIOMYOPATHY
     Route: 048
     Dates: start: 20061014, end: 20061023
  5. ISOPTIN [Suspect]
     Indication: HYPERTROPHIC CARDIOMYOPATHY
     Route: 048
     Dates: start: 20061013, end: 20061023
  6. ENALAPRIL MALEATE AND HYDROCHLOROTHIAZIDE [Suspect]
     Indication: HYPERTENSION
     Route: 048
     Dates: start: 20050101, end: 20061023

REACTIONS (3)
  - INTERNATIONAL NORMALISED RATIO INCREASED [None]
  - NODAL ARRHYTHMIA [None]
  - RENAL FAILURE ACUTE [None]
